FAERS Safety Report 8401726-5 (Version None)
Quarter: 2012Q2

REPORT INFORMATION
  Report Type: 
  Country: None (occurrence: None)
  Receive Date: 20120601
  Receipt Date: 20120525
  Transmission Date: 20120825
  Serious: Yes (Hospitalization)
  Sender: FDA-Public Use
  Company Number: US-BAYER-2012-004124

PATIENT
  Age: 27 Year
  Sex: Female
  Weight: 99.773 kg

DRUGS (3)
  1. DROSPIRENONE AND ETHINYL ESTRADIOL [Suspect]
     Indication: CONTRACEPTION
     Dosage: UNK
     Route: 048
     Dates: start: 20101201, end: 20110601
  2. YAZ [Suspect]
     Indication: CONTRACEPTION
  3. DROSPIRENONE AND ETHINYL ESTRADIOL [Concomitant]
     Dosage: UNK
     Dates: start: 20110613, end: 20110704

REACTIONS (3)
  - CHEST PAIN [None]
  - PULMONARY EMBOLISM [None]
  - DYSPNOEA [None]
